FAERS Safety Report 9331874 (Version 2)
Quarter: 2013Q2

REPORT INFORMATION
  Report Type: Spontaneous
  Country: US (occurrence: None)
  Receive Date: 20130603
  Receipt Date: 20130617
  Transmission Date: 20140414
  Serious: Yes (Other)
  Sender: FDA-Public Use
  Company Number: ACO_36505_2013

PATIENT
  Age: 49 Year
  Sex: Female

DRUGS (5)
  1. AMPYRA [Suspect]
     Indication: PRODUCT USED FOR UNKNOWN INDICATION
     Dates: start: 20100803
  2. AVONEX (INTERFERON BETA-1A) [Concomitant]
  3. NEURONTIN (GABAPENTIN) [Concomitant]
  4. MOBIC (MELOXICAM) [Concomitant]
  5. NORCO (HYDROCODONE BITARTRATE, PARACETAMOL) [Concomitant]

REACTIONS (2)
  - Benign neoplasm [None]
  - Adverse drug reaction [None]
